FAERS Safety Report 6929761-4 (Version None)
Quarter: 2010Q3

REPORT INFORMATION
  Report Type: 
  Country: None (occurrence: None)
  Receive Date: 20100818
  Receipt Date: 20100806
  Transmission Date: 20110219
  Serious: Yes (Hospitalization)
  Sender: FDA-Public Use
  Company Number: FR-KINGPHARMUSA00001-K201000909

PATIENT
  Age: 77 Year
  Sex: Female

DRUGS (16)
  1. ALTACE [Suspect]
     Indication: HYPERTENSION
     Dosage: 5 MG, BID
     Route: 048
  2. ALTACE [Suspect]
     Dosage: 5 MG, QD
  3. ALTACE [Suspect]
     Dosage: 2.5 MG, QAM
  4. PROTHIPENDYL [Suspect]
     Indication: SLEEP DISORDER
     Dosage: 80 MG, QHS
  5. AMLODIPINE [Suspect]
     Indication: HYPERTENSION
     Dosage: 5 MG, QAM
  6. AMLODIPINE [Suspect]
     Dosage: 10 MG, QAM
  7. AMLODIPINE [Suspect]
     Dosage: 5 MG, QD
  8. HYDROCHLOROTHIAZIDE [Suspect]
     Indication: HYPERTENSION
     Dosage: 12.5 MG, QD
  9. BISOPROLOL [Suspect]
     Indication: HYPERTENSION
     Dosage: 5 MG, QD
  10. BISOPROLOL [Suspect]
     Dosage: 2.5 MG, QAM
  11. BAYOTENSIN AKUT [Suspect]
     Indication: HYPERTENSION
     Dosage: UNK, PRN
  12. PREGABALIN [Concomitant]
     Dosage: 150 MG, QD
  13. OLANZAPINE [Concomitant]
     Dosage: 5 MG, QD
  14. VALPROIC ACID [Concomitant]
     Dosage: 900 MG, QD
  15. CITALOPRAM HYDROBROMIDE [Concomitant]
     Indication: DEPRESSION
  16. DONEPEZIL HCL [Concomitant]
     Indication: COGNITIVE DISORDER

REACTIONS (5)
  - CEREBRAL DISORDER [None]
  - DRUG INTERACTION [None]
  - DYSARTHRIA [None]
  - HYPOTENSION [None]
  - SYNCOPE [None]
